FAERS Safety Report 25931396 (Version 1)
Quarter: 2025Q4

REPORT INFORMATION
  Report Type: Spontaneous
  Country: EU (occurrence: EU)
  Receive Date: 20251016
  Receipt Date: 20251016
  Transmission Date: 20260118
  Serious: Yes (Other)
  Sender: Haleon PLC
  Company Number: EU-EMA-DD-20250926-7482707-075915

PATIENT
  Age: 65 Year
  Sex: Male

DRUGS (1)
  1. IBUPROFEN [Suspect]
     Active Substance: IBUPROFEN
     Indication: Back pain
     Dosage: 2 TABLETS AT 400 MG

REACTIONS (3)
  - Acute kidney injury [Unknown]
  - Hyperkalaemia [Unknown]
  - Oliguria [Unknown]
